FAERS Safety Report 9377440 (Version 2)
Quarter: 2013Q3

REPORT INFORMATION
  Report Type: Report from Study
  Country: US (occurrence: US)
  Receive Date: 20130701
  Receipt Date: 20130816
  Transmission Date: 20140515
  Serious: Yes (Death, Hospitalization, Other)
  Sender: FDA-Public Use
  Company Number: US-ABBOTT-13P-163-1111281-00

PATIENT
  Sex: Male
  Weight: 80.81 kg

DRUGS (4)
  1. HUMIRA [Suspect]
     Indication: ARTHRITIS ENTEROPATHIC
     Route: 058
     Dates: start: 201109, end: 201205
  2. UNKNOWN MEDICATION [Concomitant]
     Indication: BLOOD PRESSURE
  3. CELEBREX [Concomitant]
     Dates: start: 20121105
  4. ALPRAZOLAM [Concomitant]
     Dates: start: 20121108

REACTIONS (14)
  - Myelofibrosis [Fatal]
  - Splenomegaly [Fatal]
  - White blood cell count increased [Fatal]
  - Pain [Fatal]
  - Weight decreased [Not Recovered/Not Resolved]
  - Arthralgia [Not Recovered/Not Resolved]
  - Catabolic state [Not Recovered/Not Resolved]
  - Fatigue [Recovering/Resolving]
  - Pulmonary mass [Unknown]
  - Myelodysplastic syndrome [Unknown]
  - Myeloproliferative disorder [Unknown]
  - Abdominal pain [Recovering/Resolving]
  - Blood creatinine increased [Not Recovered/Not Resolved]
  - Platelet count decreased [Not Recovered/Not Resolved]
